FAERS Safety Report 10636773 (Version 2)
Quarter: 2014Q4

REPORT INFORMATION
  Report Type: Spontaneous
  Country: JP (occurrence: JP)
  Receive Date: 20141208
  Receipt Date: 20141208
  Transmission Date: 20150529
  Serious: Yes (Other)
  Sender: FDA-Public Use
  Company Number: JP-ROCHE-1445373

PATIENT
  Age: 64 Year
  Sex: Male
  Weight: 74 kg

DRUGS (2)
  1. XELODA [Suspect]
     Active Substance: CAPECITABINE
     Indication: RECTAL CANCER
     Dosage: DOSAGE IS UNCERTAIN.
     Route: 048
     Dates: start: 20140305, end: 20140722
  2. ELPLAT [Suspect]
     Active Substance: OXALIPLATIN
     Indication: RECTAL CANCER
     Route: 041
     Dates: start: 20140305, end: 20140507

REACTIONS (2)
  - Hepatic function abnormal [Unknown]
  - VIIth nerve paralysis [Recovered/Resolved with Sequelae]

NARRATIVE: CASE EVENT DATE: 20140722
